FAERS Safety Report 13361474 (Version 1)
Quarter: 2017Q1

REPORT INFORMATION
  Report Type: Spontaneous
  Country: US (occurrence: US)
  Receive Date: 20170323
  Receipt Date: 20170323
  Transmission Date: 20170429
  Serious: No
  Sender: FDA-Public Use
  Company Number: US-TEVA-743720USA

PATIENT

DRUGS (1)
  1. ACTIQ [Suspect]
     Active Substance: FENTANYL CITRATE
     Indication: MIGRAINE

REACTIONS (3)
  - Product use issue [Unknown]
  - Drug prescribing error [Unknown]
  - Migraine [Not Recovered/Not Resolved]
